FAERS Safety Report 6700183-4 (Version None)
Quarter: 2010Q2

REPORT INFORMATION
  Report Type: 
  Country: None (occurrence: None)
  Receive Date: 20100428
  Receipt Date: 20100421
  Transmission Date: 20101027
  Serious: Yes (Disabling)
  Sender: FDA-Public Use
  Company Number: JP-ASTRAZENECA-2010SE18462

PATIENT
  Age: 0 Year
  Sex: Male

DRUGS (3)
  1. CANDESARTAN CILEXETIL [Suspect]
     Indication: HYPERTENSION
     Route: 064
  2. COVERSYL [Suspect]
     Indication: HYPERTENSION
     Route: 064
  3. DIURETICS [Suspect]
     Indication: HYPERTENSION
     Route: 064

REACTIONS (1)
  - RENAL INJURY [None]
